FAERS Safety Report 4644416-7 (Version None)
Quarter: 2005Q2

REPORT INFORMATION
  Report Type: 
  Country: None (occurrence: None)
  Receive Date: 20050331
  Receipt Date: 20041209
  Transmission Date: 20051028
  Serious: No
  Sender: FDA-Public Use
  Company Number: 04P-163-0282725-00

PATIENT
  Age: 43 Year
  Sex: Female
  Weight: 130 kg

DRUGS (10)
  1. HUMIRA [Suspect]
     Indication: RHEUMATOID ARTHRITIS
     Dosage: 40 MG, 1 IN 2 WK, SUBCUTANEOUS
     Route: 058
     Dates: start: 20020101
  2. ASPIRIN [Suspect]
     Indication: CARDIAC DISORDER
     Dosage: 325 MG, 1 IN 1 D, PER ORAL
     Route: 048
     Dates: start: 20041205, end: 20041209
  3. ASPIRIN [Suspect]
     Indication: PROPHYLAXIS
     Dosage: 325 MG, 1 IN 1 D, PER ORAL
     Route: 048
     Dates: start: 20041205, end: 20041209
  4. PREDNISONE [Concomitant]
  5. CELECOXIB [Concomitant]
  6. PRINZIDE [Concomitant]
  7. MULTI-VITAMINS [Concomitant]
  8. CALCIUM GLUCONATE [Concomitant]
  9. GLUCOSAMINE/CHONDRITIN [Concomitant]
  10. OMEGA 3 FATTY ACID OIL [Concomitant]

REACTIONS (1)
  - EPISTAXIS [None]
